FAERS Safety Report 4290026-3 (Version None)
Quarter: 2004Q1

REPORT INFORMATION
  Report Type: 
  Country: None (occurrence: None)
  Receive Date: 20040209
  Receipt Date: 20040129
  Transmission Date: 20041129
  Serious: Yes (Hospitalization)
  Sender: FDA-Public Use
  Company Number: 0104-1448

PATIENT
  Age: 46 Year
  Sex: Female

DRUGS (3)
  1. ADVICOR [Suspect]
     Indication: BLOOD CHOLESTEROL INCREASED
     Dosage: 1 TABLET (S) QHS PO
     Route: 048
     Dates: start: 20031129, end: 20031227
  2. ALTACE [Concomitant]
  3. MULTI-VITAMIN [Concomitant]

REACTIONS (2)
  - DIABETES MELLITUS [None]
  - THROMBOCYTOPENIA [None]
